FAERS Safety Report 8678104 (Version 3)
Quarter: 2012Q4

REPORT INFORMATION
  Report Type: 
  Country: DE (occurrence: DE)
  Receive Date: 20120723
  Receipt Date: 20120829
  Transmission Date: 20130627
  Serious: Yes (Other)
  Sender: FDA-Public Use
  Company Number: DE-CELGENEUS-062-21660-12071269

PATIENT
  Age: 46 Year
  Sex: Female
  Weight: 55 kg

DRUGS (12)
  1. ABRAXANE [Suspect]
     Indication: BREAST CANCER
     Route: 065
     Dates: start: 20120531, end: 20120626
  2. ABRAXANE [Suspect]
     Indication: BONE METASTASES
  3. ABRAXANE [Suspect]
     Indication: BRAIN METASTASES
  4. ABRAXANE [Suspect]
     Indication: LIVER METASTASES
  5. AVASTIN [Concomitant]
     Indication: BRAIN METASTASES
     Route: 065
     Dates: start: 20120425, end: 20120719
  6. AVASTIN [Concomitant]
     Indication: LIVER METASTASES
  7. AVASTIN [Concomitant]
     Indication: BONE METASTASES
  8. DEXAMETHASONE [Concomitant]
     Indication: BRAIN METASTASES
     Dosage: 4 Milligram
     Route: 065
     Dates: start: 201101
  9. CLEXANE [Concomitant]
     Indication: DEEP VEIN THROMBOSIS
     Dosage: .8 Unknown
     Route: 065
     Dates: start: 20111110
  10. EUTHYROX [Concomitant]
     Indication: HYPOTHYROIDISM
     Dosage: 100 Unknown
     Route: 065
  11. METOHEXAL [Concomitant]
     Indication: HYPERTENSION
     Dosage: 47.5 Unknown
     Route: 065
     Dates: start: 20111108
  12. BONDRONAT [Concomitant]
     Indication: METASTATIC BREAST CANCER
     Dosage: .2143 Milligram
     Route: 065
     Dates: start: 20110928

REACTIONS (1)
  - Metastases to meninges [Not Recovered/Not Resolved]
